FAERS Safety Report 10762773 (Version 1)
Quarter: 2015Q1

REPORT INFORMATION
  Report Type: Spontaneous
  Country: US (occurrence: US)
  Receive Date: 20150204
  Receipt Date: 20150204
  Transmission Date: 20150721
  Serious: Yes (Hospitalization, Other)
  Sender: FDA-Public Use
  Company Number: US-AUROBINDO-AUR-APL-2015-00744

PATIENT
  Age: 57 Year
  Sex: Male

DRUGS (1)
  1. CIPROFLOXACIN. [Suspect]
     Active Substance: CIPROFLOXACIN
     Indication: PROPHYLAXIS
     Dosage: 500 MG, TWO TIMES A DAY
     Route: 048

REACTIONS (7)
  - Escherichia infection [Recovered/Resolved]
  - Drug resistance [Unknown]
  - Testicular torsion [Recovered/Resolved]
  - Testicular swelling [Recovered/Resolved]
  - Scrotal swelling [Recovered/Resolved]
  - Testicular pain [Recovered/Resolved]
  - Orchitis [Recovered/Resolved]
